FAERS Safety Report 11554517 (Version 1)
Quarter: 2015Q3

REPORT INFORMATION
  Report Type: Spontaneous
  Country: GB (occurrence: GB)
  Receive Date: 20150925
  Receipt Date: 20150925
  Transmission Date: 20151125
  Serious: Yes (Other)
  Sender: FDA-Public Use
  Company Number: GB-PFIZER INC-2015316981

PATIENT
  Age: 31 Year
  Sex: Female
  Weight: 66 kg

DRUGS (5)
  1. NITROFURANTOIN. [Concomitant]
     Active Substance: NITROFURANTOIN
     Dosage: UNK
  2. PIPERACILLIN/TAZOBACTAM [Suspect]
     Active Substance: PIPERACILLIN SODIUM\TAZOBACTAM SODIUM
     Indication: PYELONEPHRITIS
     Dosage: 1 DF, 3X/DAY
     Route: 042
     Dates: start: 20150831, end: 20150901
  3. PIPERACILLIN/TAZOBACTAM [Suspect]
     Active Substance: PIPERACILLIN SODIUM\TAZOBACTAM SODIUM
     Dosage: 4.5 G, 3X/DAY
     Route: 042
     Dates: start: 20150901, end: 20150902
  4. TRAMADOL. [Suspect]
     Active Substance: TRAMADOL
     Dosage: 50 MG, 4X/DAY (AS NECESSARY)
  5. MEROPENEM. [Suspect]
     Active Substance: MEROPENEM
     Indication: PYELONEPHRITIS
     Dosage: 1 G, 3X/DAY
     Route: 042
     Dates: start: 20150902, end: 20150904

REACTIONS (5)
  - Mouth ulceration [Recovered/Resolved]
  - Eye swelling [Not Recovered/Not Resolved]
  - Pancytopenia [Not Recovered/Not Resolved]
  - Rash maculo-papular [Not Recovered/Not Resolved]
  - Stevens-Johnson syndrome [Not Recovered/Not Resolved]

NARRATIVE: CASE EVENT DATE: 2015
